FAERS Safety Report 13910906 (Version 15)
Quarter: 2019Q2

REPORT INFORMATION
  Report Type: Spontaneous
  Country: ES (occurrence: ES)
  Receive Date: 20170828
  Receipt Date: 20190405
  Transmission Date: 20190711
  Serious: Yes (Hospitalization, Other)
  Sender: FDA-Public Use
  Company Number: ES-PFIZER INC-2017363662

PATIENT
  Age: 66 Year
  Sex: Male

DRUGS (17)
  1. PREDNISONE. [Suspect]
     Active Substance: PREDNISONE
     Dosage: 60 MG, 1X/DAY
     Route: 048
     Dates: start: 20170703
  2. SEPTRIN [Suspect]
     Active Substance: SULFAMETHOXAZOLE\TRIMETHOPRIM
     Indication: ANTIFUNGAL PROPHYLAXIS
  3. DEXKETOPROFEN [Concomitant]
     Active Substance: DEXKETOPROFEN
     Dosage: AT 25 MG (1 AT BREAKFAST, 1 AT LUNCH, 1 AT DINNER ), AS NEEDED
     Route: 048
  4. CALCIUM + VITAMIN D [Concomitant]
     Active Substance: CALCIUM\VITAMIN D
     Dosage: 1 DF, 2X/DAY
     Route: 048
  5. LORAZEPAM. [Concomitant]
     Active Substance: LORAZEPAM
     Dosage: 1 MG, 1X/DAY (AT BEDTIME)
     Route: 048
  6. VALCYTE [Suspect]
     Active Substance: VALGANCICLOVIR HYDROCHLORIDE
     Indication: ANTIVIRAL PROPHYLAXIS
     Dosage: 900 MG, 1X/DAY (AT LUNCH TIME)
     Route: 048
     Dates: start: 20170707
  7. ZITROMAX [Suspect]
     Active Substance: AZITHROMYCIN
     Dosage: UNK
  8. SEPTRIN [Suspect]
     Active Substance: SULFAMETHOXAZOLE\TRIMETHOPRIM
     Indication: ANTIFUNGAL PROPHYLAXIS
     Dosage: 1 DF, 1X/DAY (ONCE A DAY (AT LUNCH TIME)
     Route: 048
     Dates: start: 20170707
  9. ABELCET [Concomitant]
     Active Substance: AMPHOTERICIN B\DIMYRISTOYLPHOSPHATIDYLCHOLINE, DL-\DIMYRISTOYLPHOSPHATIDYLGLYCEROL, DL-
     Dosage: 50 MG, WEEKLY (ON MONDAYS IN THE AFTERNOON)
     Route: 055
  10. ZITROMAX [Suspect]
     Active Substance: AZITHROMYCIN
     Indication: IMMUNOMODULATORY THERAPY
     Dosage: 250 MG, EVERY 48 HOUR ON L-X-V AT LUNCH
     Route: 048
     Dates: start: 20170801
  11. PREDNISONE. [Suspect]
     Active Substance: PREDNISONE
     Indication: IMMUNOSUPPRESSANT DRUG THERAPY
     Dosage: 30 MG, 2X/DAY (AT BREAKFAST TIME)
     Route: 048
     Dates: start: 20170101
  12. CELLCEPT [Suspect]
     Active Substance: MYCOPHENOLATE MOFETIL\MYCOPHENOLATE MOFETIL HYDROCHLORIDE
     Indication: IMMUNOSUPPRESSION
     Dosage: 500 MG, 4X/DAY(TABLET 2 AT BREAKFAST AND 2 AT DINNER 1000 MG, 2X/DAY (BID), 500 MG, 4X/DAY (2 AT BRE
     Route: 048
     Dates: start: 20170703
  13. PARACETAMOL [Concomitant]
     Active Substance: ACETAMINOPHEN
     Dosage: 500 MG (2 AT BREAKFAST, 2 AT LUNCH, 2 AT DINNER), AS NEEDED
     Route: 048
  14. OMEPRAZOLE. [Concomitant]
     Active Substance: OMEPRAZOLE
     Dosage: 20 MG, 1X/DAY (AT BREAKFAST)
     Route: 048
  15. PROGRAF [Suspect]
     Active Substance: TACROLIMUS\TACROLIMUS ANHYDROUS
     Indication: IMMUNOSUPPRESSANT DRUG THERAPY
     Dosage: 4.5 MG, 2X/DAY (EVERY 12 HOURS) 4.5 MG BEFORE BREAKFAST AND 4 MG BEFORE DINNER
     Route: 048
     Dates: start: 20170101
  16. PROGRAF [Suspect]
     Active Substance: TACROLIMUS\TACROLIMUS ANHYDROUS
     Dosage: 5 MG, 2X/DAY (1 IN THE MORNING AND 1 BEFORE DINNER)
     Route: 048
     Dates: start: 20170704
  17. PREDNISONE. [Suspect]
     Active Substance: PREDNISONE
     Dosage: 20 MG, DAILY
     Route: 048
     Dates: start: 20170703

REACTIONS (9)
  - Flank pain [Unknown]
  - Bone pain [Unknown]
  - Fatigue [Unknown]
  - Hypoaesthesia [Unknown]
  - Gait disturbance [Unknown]
  - Myalgia [Unknown]
  - Large intestinal ulcer [Unknown]
  - Paraesthesia [Unknown]
  - Pyrexia [Not Recovered/Not Resolved]

NARRATIVE: CASE EVENT DATE: 2017
